FAERS Safety Report 7305262-9 (Version None)
Quarter: 2011Q1

REPORT INFORMATION
  Report Type: 
  Country: None (occurrence: None)
  Receive Date: 20110222
  Receipt Date: 20110210
  Transmission Date: 20110831
  Serious: Yes (Hospitalization)
  Sender: FDA-Public Use
  Company Number: US-GENZYME-THYM-1002307

PATIENT

DRUGS (6)
  1. THYMOGLOBULIN [Suspect]
     Indication: MYELODYSPLASTIC SYNDROME
     Dosage: 2.5 MG/KG, QD
     Route: 042
  2. THYMOGLOBULIN [Suspect]
     Dosage: 2.5 MG/KG, QD
     Route: 042
  3. PREDNISONE [Concomitant]
     Indication: PROPHYLAXIS
     Dosage: 1 MG/KG, QD
     Route: 048
  4. THYMOGLOBULIN [Suspect]
     Dosage: 2.5 MG/KG, QD
     Route: 042
  5. PREDNISONE [Concomitant]
     Dosage: UNK
     Route: 048
  6. THYMOGLOBULIN [Suspect]
     Dosage: 2.5 MG/KG, QD
     Route: 042

REACTIONS (2)
  - NEUROPATHY PERIPHERAL [None]
  - SERUM SICKNESS [None]
